FAERS Safety Report 25451513 (Version 2)
Quarter: 2025Q2

REPORT INFORMATION
  Report Type: Report from Study
  Country: US (occurrence: US)
  Receive Date: 20250618
  Receipt Date: 20250624
  Transmission Date: 20250716
  Serious: Yes (Death)
  Sender: ROCHE
  Company Number: US-ROCHE-10000314939

PATIENT
  Age: 93 Year
  Sex: Female

DRUGS (11)
  1. VABYSMO [Suspect]
     Active Substance: FARICIMAB-SVOA
     Indication: Neovascular age-related macular degeneration
     Route: 050
     Dates: start: 20250121
  2. VABYSMO [Suspect]
     Active Substance: FARICIMAB-SVOA
  3. VABYSMO [Suspect]
     Active Substance: FARICIMAB-SVOA
  4. VABYSMO [Suspect]
     Active Substance: FARICIMAB-SVOA
  5. VABYSMO [Suspect]
     Active Substance: FARICIMAB-SVOA
     Indication: Neovascular age-related macular degeneration
     Route: 050
     Dates: start: 202408
  6. CARVEDILOL [Concomitant]
     Active Substance: CARVEDILOL
  7. ESTRADIOL [Concomitant]
     Active Substance: ESTRADIOL
  8. LISINOPRIL [Concomitant]
     Active Substance: LISINOPRIL
  9. PRAVASTATIN [Concomitant]
     Active Substance: PRAVASTATIN
  10. MINERALS\VITAMINS [Concomitant]
     Active Substance: MINERALS\VITAMINS
  11. XARELTO [Concomitant]
     Active Substance: RIVAROXABAN

REACTIONS (2)
  - Death [Fatal]
  - Off label use [Unknown]

NARRATIVE: CASE EVENT DATE: 20250606
